FAERS Safety Report 21155681 (Version 5)
Quarter: 2023Q2

REPORT INFORMATION
  Report Type: Report from Study
  Country: DE (occurrence: DE)
  Receive Date: 20220801
  Receipt Date: 20230512
  Transmission Date: 20230722
  Serious: Yes (Other)
  Sender: FDA-Public Use
  Company Number: DE-NOVARTISPH-NVSC2022DE171581

PATIENT
  Sex: Female
  Weight: 69 kg

DRUGS (15)
  1. COSENTYX [Suspect]
     Active Substance: SECUKINUMAB
     Indication: Psoriatic arthropathy
     Dosage: 150 MG, ONCE/SINGLE
     Route: 065
     Dates: start: 20220713, end: 20220713
  2. LEVOTHYROXINE [Concomitant]
     Active Substance: LEVOTHYROXINE
     Indication: Hypothyroidism
     Dosage: 1 DOSAGE FORM, QD DAILY (MORNING)
     Route: 048
     Dates: start: 2000
  3. INDAPAMIDE\PERINDOPRIL [Concomitant]
     Active Substance: INDAPAMIDE\PERINDOPRIL
     Indication: Hypertension
     Dosage: 1 DOSAGE FORM, QD DAILY (MORNING)
     Route: 048
     Dates: start: 2010
  4. METAMIZOLE SODIUM [Concomitant]
     Active Substance: METAMIZOLE SODIUM
     Indication: Pain
     Dosage: 500 MG, PRN
     Route: 048
     Dates: start: 2002
  5. CALCIUM [Concomitant]
     Active Substance: CALCIUM
     Indication: Prophylaxis
     Dosage: UNK, QD DAILY (MORNING) (COMMERCIALLY AVAILABLE FIZZY TABLETS])
     Route: 048
     Dates: start: 2021
  6. CHOLECALCIFEROL [Concomitant]
     Active Substance: CHOLECALCIFEROL
     Indication: Prophylaxis
     Dosage: 20000 IU, QW
     Route: 048
     Dates: start: 2021
  7. FOLIC ACID [Concomitant]
     Active Substance: FOLIC ACID
     Indication: Product used for unknown indication
     Dosage: UNK, QD DAILY (MORNING) (AFTER MTX INTAKE)
     Route: 048
     Dates: start: 20220708, end: 20220709
  8. MAGNEROT N [Concomitant]
     Indication: Prophylaxis
     Dosage: 2 DOSAGE FORM, QD IN THE MORNING)
     Route: 048
     Dates: start: 2002
  9. ALLERGODIL AKUT [Concomitant]
     Indication: Hypersensitivity
     Dosage: UNK UNK, PRN (OTHER (INTO THE EYE)
     Route: 031
     Dates: start: 2021
  10. ALBUTEROL [Concomitant]
     Active Substance: ALBUTEROL
     Indication: Chronic obstructive pulmonary disease
     Dosage: 0.12 MG PER PUFF, PRN (METERED AEROSOL)
     Dates: start: 2007
  11. METHOTREXATE [Concomitant]
     Active Substance: METHOTREXATE
     Indication: Psoriatic arthropathy
     Dosage: 15 MG, QW
     Route: 058
     Dates: start: 20220707, end: 20220719
  12. MOMETASONE FUROATE [Concomitant]
     Active Substance: MOMETASONE FUROATE
     Indication: Dermatitis
     Dosage: 1 MICROGRAM PER GRAM, PRN
     Route: 061
     Dates: start: 2020
  13. MOMETASONE FUROATE [Concomitant]
     Active Substance: MOMETASONE FUROATE
     Dosage: UNK, AS NEEDED
     Route: 061
     Dates: start: 2020
  14. PANOTILE [Concomitant]
     Indication: Sialoadenitis
     Dosage: UNK UNK, PRN
     Route: 048
     Dates: start: 2020
  15. ZOPICLONE [Concomitant]
     Active Substance: ZOPICLONE
     Indication: Psoriatic arthropathy
     Dosage: 7.5 MG, QD (ONCE DAILY AT NIGHT)
     Route: 048
     Dates: start: 20220727

REACTIONS (3)
  - Pneumonia [Not Recovered/Not Resolved]
  - Asthma [Not Recovered/Not Resolved]
  - Nasopharyngitis [Not Recovered/Not Resolved]

NARRATIVE: CASE EVENT DATE: 20220719
